FAERS Safety Report 8965558 (Version 2)
Quarter: 2013Q1

REPORT INFORMATION
  Report Type: Spontaneous
  Country: DK (occurrence: None)
  Receive Date: 20121205
  Receipt Date: 20121210
  Transmission Date: 20140127
  Serious: Yes (Life-Threatening)
  Sender: FDA-Public Use
  Company Number: 2012MA013731

PATIENT
  Age: 83 Year
  Sex: Female

DRUGS (2)
  1. TRAMADOL [Suspect]
     Indication: PAIN
     Route: 048
  2. MAREVAN [Suspect]
     Indication: ATRIAL FIBRILLATION
     Route: 048

REACTIONS (2)
  - International normalised ratio increased [None]
  - Drug interaction [None]
